FAERS Safety Report 26145752 (Version 1)
Quarter: 2025Q4

REPORT INFORMATION
  Report Type: Spontaneous
  Country: EU (occurrence: EU)
  Receive Date: 20251211
  Receipt Date: 20251211
  Transmission Date: 20260117
  Serious: Yes (Death)
  Sender: MERCK SHARP & DOHME LLC
  Company Number: EU-009507513-2358385

PATIENT
  Sex: Female

DRUGS (2)
  1. PEMBROLIZUMAB [Suspect]
     Active Substance: PEMBROLIZUMAB
     Indication: Head and neck cancer
     Dosage: TIME INTERVAL: CYCLICAL: FIRST LINE, MONOTHERAPY, 2 CYCLES
  2. FLUOROURACIL [Suspect]
     Active Substance: FLUOROURACIL
     Indication: Head and neck cancer
     Dosage: LOW DOSE, VIA PORT (UNSPECIFIED)
     Route: 051

REACTIONS (3)
  - Renal function test abnormal [Fatal]
  - Ill-defined disorder [Fatal]
  - Fatigue [Unknown]
